FAERS Safety Report 18562320 (Version 2)
Quarter: 2020Q4

REPORT INFORMATION
  Report Type: Spontaneous
  Country: JP (occurrence: JP)
  Receive Date: 20201130
  Receipt Date: 20201209
  Transmission Date: 20210114
  Serious: Yes (Other)
  Sender: FDA-Public Use
  Company Number: JP-JNJFOC-20201145482

PATIENT
  Age: 75 Year
  Sex: Male

DRUGS (4)
  1. RIVAROXABAN [Suspect]
     Active Substance: RIVAROXABAN
     Indication: PULMONARY EMBOLISM
     Dosage: DAILY DOSE 30 MG
     Route: 048
  2. OXYGEN. [Concomitant]
     Active Substance: OXYGEN
  3. WARFARIN [Concomitant]
     Active Substance: WARFARIN
  4. RIVAROXABAN [Suspect]
     Active Substance: RIVAROXABAN
     Dosage: DAILY DOSE 15 MG
     Route: 048

REACTIONS (3)
  - Hepatic neoplasm [Unknown]
  - Metastases to bone [Unknown]
  - Spindle cell sarcoma [Unknown]
